FAERS Safety Report 17812841 (Version 1)
Quarter: 2020Q2

REPORT INFORMATION
  Report Type: Spontaneous
  Country: FR (occurrence: FR)
  Receive Date: 20200521
  Receipt Date: 20200521
  Transmission Date: 20200714
  Serious: Yes (Hospitalization)
  Sender: FDA-Public Use
  Company Number: FR-009507513-2005FRA007113

PATIENT
  Age: 1 Year
  Sex: Male

DRUGS (1)
  1. SINGULAIR [Suspect]
     Active Substance: MONTELUKAST SODIUM
     Indication: ASTHMA
     Dosage: 4 GRAM, QD
     Route: 048
     Dates: start: 201904, end: 202004

REACTIONS (3)
  - Sleep disorder [Recovered/Resolved]
  - Behaviour disorder [Recovered/Resolved]
  - Head banging [Recovered/Resolved]

NARRATIVE: CASE EVENT DATE: 20200308
